FAERS Safety Report 4596763-5 (Version None)
Quarter: 2005Q1

REPORT INFORMATION
  Report Type: 
  Country: None (occurrence: None)
  Receive Date: 20050228
  Receipt Date: 20050211
  Transmission Date: 20050727
  Serious: Yes (Hospitalization)
  Sender: FDA-Public Use
  Company Number: 10273

PATIENT
  Age: 70 Year
  Sex: Male

DRUGS (4)
  1. METHOTREXATE [Suspect]
     Dosage: 10 MG TID PO
     Route: 048
     Dates: start: 20030213, end: 20030218
  2. ACETYLSALICYLIC ACID SRT [Concomitant]
  3. ATENOLOL [Concomitant]
  4. OMEPRAZOLE [Concomitant]

REACTIONS (9)
  - ACCIDENTAL OVERDOSE [None]
  - ALOPECIA [None]
  - BONE MARROW DEPRESSION [None]
  - DRUG TOXICITY [None]
  - HEADACHE [None]
  - MEDICATION ERROR [None]
  - MUCOSAL INFLAMMATION [None]
  - NASOPHARYNGITIS [None]
  - NAUSEA [None]
